FAERS Safety Report 10866535 (Version 1)
Quarter: 2015Q1

REPORT INFORMATION
  Report Type: Report from Study
  Country: US (occurrence: US)
  Receive Date: 20150225
  Receipt Date: 20150225
  Transmission Date: 20150721
  Serious: Yes (Death, Hospitalization)
  Sender: FDA-Public Use
  Company Number: US-ROCHE-1543158

PATIENT
  Age: 46 Year
  Sex: Female
  Weight: 79 kg

DRUGS (5)
  1. TRASTUZUMAB [Suspect]
     Active Substance: TRASTUZUMAB
     Indication: BREAST CANCER
     Dosage: OVER 90 MINUTES ON DAY 1 CYCLE 1?LOADING DOSE
     Route: 042
     Dates: start: 20140529
  2. DOCETAXEL. [Suspect]
     Active Substance: DOCETAXEL
     Indication: BREAST CANCER
     Dosage: OVER 60 MINUTES ON DAY 1 FOR 6 CYCLES
     Route: 042
     Dates: start: 20140529
  3. CYCLOPHOSPHAMIDE. [Suspect]
     Active Substance: CYCLOPHOSPHAMIDE
     Indication: BREAST CANCER
     Dosage: OVER 30 MINUTES ON DAY 1 FOR 6 CYCLES
     Route: 042
  4. TRASTUZUMAB [Suspect]
     Active Substance: TRASTUZUMAB
     Dosage: OVER 30-60 MINUTES ON DAY 1 FOR CYCLES 2?MAINTENANCE DOSE
     Route: 042
  5. TRASTUZUMAB [Suspect]
     Active Substance: TRASTUZUMAB
     Dosage: OVER 30-90 MINUTES ON DAY 1 UNTIL 1 YEAR AFTER 1ST TRASTUZUMAB DOSE
     Route: 042

REACTIONS (1)
  - Enterocolitis infectious [Fatal]

NARRATIVE: CASE EVENT DATE: 20140607
